FAERS Safety Report 18149808 (Version 1)
Quarter: 2020Q3

REPORT INFORMATION
  Report Type: Spontaneous
  Country: US (occurrence: US)
  Receive Date: 20200813
  Receipt Date: 20200813
  Transmission Date: 20201103
  Serious: No
  Sender: FDA-Public Use
  Company Number: None

PATIENT
  Age: 70 Year
  Sex: Female
  Weight: 112.5 kg

DRUGS (14)
  1. FOLIC ACID. [Concomitant]
     Active Substance: FOLIC ACID
  2. FISH OIL [Concomitant]
     Active Substance: FISH OIL
  3. ASPIRIN. [Concomitant]
     Active Substance: ASPIRIN
  4. CALCIUM [Concomitant]
     Active Substance: CALCIUM
  5. MAGNESIUM [Concomitant]
     Active Substance: MAGNESIUM
  6. SOY ISOFLAVONES [Concomitant]
     Active Substance: SOY ISOFLAVONES
  7. FLUTICASONE SPRAY [Concomitant]
     Active Substance: FLUTICASONE
  8. COENZYME Q10 [Concomitant]
     Active Substance: DIETARY SUPPLEMENT\UBIDECARENONE
  9. LITHIUM OROTATE 1000?MCG [Concomitant]
  10. CETIRAZINE [Concomitant]
  11. ACITRETIN. [Suspect]
     Active Substance: ACITRETIN
     Indication: PSORIASIS
     Route: 048
     Dates: start: 20181224, end: 20190116
  12. VITAMIN B12 [Concomitant]
     Active Substance: CYANOCOBALAMIN
  13. CURCUMIN [Concomitant]
     Active Substance: CURCUMIN
  14. MULTIVITAMIN AND MINERAL [Concomitant]
     Active Substance: MINERALS\VITAMINS

REACTIONS (3)
  - Impaired driving ability [None]
  - Photopsia [None]
  - Insomnia [None]

NARRATIVE: CASE EVENT DATE: 20190115
